FAERS Safety Report 18098186 (Version 1)
Quarter: 2020Q3

REPORT INFORMATION
  Report Type: Spontaneous
  Country: US (occurrence: US)
  Receive Date: 20200730
  Receipt Date: 20200730
  Transmission Date: 20201103
  Serious: Yes (Hospitalization)
  Sender: FDA-Public Use
  Company Number: None

PATIENT
  Age: 31 Year
  Sex: Female
  Weight: 94.35 kg

DRUGS (5)
  1. TRIAMCINOLONE ACETONIDE (NASACORT ALLERGY 24HR) [Concomitant]
  2. ZYRTEC [Concomitant]
     Active Substance: CETIRIZINE HYDROCHLORIDE
  3. DROSPIRENONE? ETHINYL ESTRADIOL (SYEDA OR) [Concomitant]
  4. CHOLECALCIFEROL(VITAMIN D) [Concomitant]
  5. REMICADE [Suspect]
     Active Substance: INFLIXIMAB
     Dosage: ?          OTHER FREQUENCY:EVERY 6 WEEKS;?

REACTIONS (2)
  - Ocular discomfort [None]
  - Optic neuritis [None]

NARRATIVE: CASE EVENT DATE: 20190905
